FAERS Safety Report 17078492 (Version 7)
Quarter: 2020Q3

REPORT INFORMATION
  Report Type: Report from Study
  Country: US (occurrence: US)
  Receive Date: 20191126
  Receipt Date: 20200713
  Transmission Date: 20201102
  Serious: Yes (Hospitalization, Other)
  Sender: FDA-Public Use
  Company Number: NVSC2019US048862

PATIENT
  Age: 70 Year
  Sex: Female

DRUGS (3)
  1. BEOVU [Suspect]
     Active Substance: BROLUCIZUMAB-DBLL
     Indication: NEOVASCULAR AGE-RELATED MACULAR DEGENERATION
     Dosage: 6 MG, Q8W
     Route: 047
     Dates: start: 20191120
  2. BEOVU [Suspect]
     Active Substance: BROLUCIZUMAB-DBLL
     Dosage: 6 MG
     Route: 047
     Dates: start: 20200320
  3. BEOVU [Suspect]
     Active Substance: BROLUCIZUMAB-DBLL
     Dosage: 6 UNK, Q8W
     Route: 047
     Dates: start: 20191227

REACTIONS (9)
  - Vitreous haze [Unknown]
  - Vitritis [Unknown]
  - Ocular hyperaemia [Unknown]
  - Eye pain [Unknown]
  - Eye disorder [Unknown]
  - Anterior chamber cell [Unknown]
  - Pneumonia [Unknown]
  - Vitreous floaters [Unknown]
  - Eye infection [Unknown]

NARRATIVE: CASE EVENT DATE: 20191120
